FAERS Safety Report 4751370-6 (Version None)
Quarter: 2005Q3

REPORT INFORMATION
  Report Type: 
  Country: None (occurrence: None)
  Receive Date: 20050823
  Receipt Date: 20050823
  Transmission Date: 20060218
  Serious: No
  Sender: FDA-Public Use
  Company Number: None

PATIENT
  Age: 82 Year
  Sex: Male

DRUGS (1)
  1. WARFARIN   2.5MG [Suspect]
     Indication: DEEP VEIN THROMBOSIS
     Dosage: 2.5 MG QD/5 MG  FRIDAYS     DAILY   PO
     Route: 048
     Dates: start: 20030401, end: 20050817

REACTIONS (6)
  - ABDOMINAL PAIN UPPER [None]
  - CONTUSION [None]
  - ECCHYMOSIS [None]
  - INCORRECT DOSE ADMINISTERED [None]
  - INTERNATIONAL NORMALISED RATIO INCREASED [None]
  - LIMB INJURY [None]
